FAERS Safety Report 8005640-9 (Version None)
Quarter: 2011Q4

REPORT INFORMATION
  Report Type: 
  Country: None (occurrence: None)
  Receive Date: 20111223
  Receipt Date: 20111212
  Transmission Date: 20120403
  Serious: Yes (Hospitalization)
  Sender: FDA-Public Use
  Company Number: ES-CELGENEUS-144-50794-11121484

PATIENT
  Age: 67 Year
  Sex: Male

DRUGS (3)
  1. RED BLOOD CELLS [Concomitant]
     Route: 065
     Dates: start: 20110801, end: 20111001
  2. PLATELETS [Concomitant]
     Route: 065
     Dates: start: 20110801, end: 20111101
  3. VIDAZA [Suspect]
     Dosage: 25 MILLIGRAM
     Route: 065
     Dates: start: 20110810, end: 20111103

REACTIONS (2)
  - TOXICITY TO VARIOUS AGENTS [None]
  - LEUKOPENIA [None]
